FAERS Safety Report 18685140 (Version 1)
Quarter: 2020Q4

REPORT INFORMATION
  Report Type: Spontaneous
  Country: GB (occurrence: GB)
  Receive Date: 20201230
  Receipt Date: 20201230
  Transmission Date: 20210114
  Serious: Yes (Other)
  Sender: FDA-Public Use
  Company Number: GB-MYLANLABS-2020M1105261

PATIENT
  Age: 15 Year
  Sex: Female
  Weight: 55 kg

DRUGS (1)
  1. DOXYCYCLINE. [Suspect]
     Active Substance: DOXYCYCLINE
     Indication: INFECTED BITE
     Dosage: 200 MILLIGRAM, QD
     Route: 048
     Dates: start: 20201113, end: 20201126

REACTIONS (5)
  - Mood altered [Not Recovered/Not Resolved]
  - Initial insomnia [Unknown]
  - Panic attack [Unknown]
  - Crying [Unknown]
  - Mood swings [Recovering/Resolving]

NARRATIVE: CASE EVENT DATE: 20201115
